FAERS Safety Report 8946991 (Version 3)
Quarter: 2013Q1

REPORT INFORMATION
  Report Type: Spontaneous
  Country: GB (occurrence: GB)
  Receive Date: 20121205
  Receipt Date: 20130116
  Transmission Date: 20140127
  Serious: Yes (Life-Threatening, Hospitalization, Other)
  Sender: FDA-Public Use
  Company Number: GB-PFIZER INC-2012304568

PATIENT
  Age: 81 Year
  Sex: Male

DRUGS (5)
  1. RAMIPRIL [Suspect]
     Indication: HYPERTENSION
     Dosage: 2.5 MG, 1X/DAY
     Route: 048
     Dates: end: 20121119
  2. CANDESARTAN CILEXETIL [Suspect]
     Indication: HYPERTENSION
     Dosage: 2 MG, 1X/DAY
     Route: 048
     Dates: start: 20101101
  3. CANDESARTAN CILEXETIL [Suspect]
     Dosage: 4 MG, 1X/DAY
     Route: 048
     Dates: end: 20121119
  4. NIFEDIPINE LA [Concomitant]
     Dosage: 30 MG, 2X/DAY
     Route: 065
  5. NIFEDIPINE LA [Concomitant]
     Dosage: 30 MG, 1X/DAY
     Route: 065

REACTIONS (1)
  - Angioedema [Recovered/Resolved]
